FAERS Safety Report 13814599 (Version 1)
Quarter: 2017Q3

REPORT INFORMATION
  Report Type: Spontaneous
  Country: US (occurrence: US)
  Receive Date: 20170729
  Receipt Date: 20170729
  Transmission Date: 20171127
  Serious: Yes (Hospitalization)
  Sender: FDA-Public Use
  Company Number: None

PATIENT
  Age: 32 Year
  Sex: Female

DRUGS (19)
  1. STOOL SOFTNR [Concomitant]
  2. NAPROXEN. [Concomitant]
     Active Substance: NAPROXEN
  3. PREDNISONE. [Concomitant]
     Active Substance: PREDNISONE
  4. OPSUMIT [Concomitant]
     Active Substance: MACITENTAN
  5. POT CHLORIDE [Concomitant]
     Active Substance: POTASSIUM CHLORIDE
  6. MAG OXIDE [Concomitant]
     Active Substance: MAGNESIUM OXIDE
  7. TIZANIDINE. [Concomitant]
     Active Substance: TIZANIDINE
  8. ATORVASTATIN [Concomitant]
     Active Substance: ATORVASTATIN
  9. SUMATRIPTAN. [Concomitant]
     Active Substance: SUMATRIPTAN
  10. HYDROCO/APAP [Concomitant]
     Active Substance: ACETAMINOPHEN\HYDROCODONE
  11. OLOPATADINE. [Concomitant]
     Active Substance: OLOPATADINE
  12. ONDANSETRON [Concomitant]
     Active Substance: ONDANSETRON
  13. FUROSEMIDE. [Concomitant]
     Active Substance: FUROSEMIDE
  14. SILDENAFIL 20MG TAB [Suspect]
     Active Substance: SILDENAFIL
     Indication: PULMONARY ARTERIAL HYPERTENSION
     Route: 048
     Dates: start: 20160516
  15. LOSARTAN/HCT [Concomitant]
     Active Substance: HYDROCHLOROTHIAZIDE\LOSARTAN POTASSIUM
  16. IPRATROPIUM [Concomitant]
     Active Substance: IPRATROPIUM
  17. TRAZODONE [Concomitant]
     Active Substance: TRAZODONE HYDROCHLORIDE
  18. CARVEDILOL. [Concomitant]
     Active Substance: CARVEDILOL
  19. CITALOPRAM [Concomitant]
     Active Substance: CITALOPRAM HYDROBROMIDE

REACTIONS (1)
  - Pneumonia [None]

NARRATIVE: CASE EVENT DATE: 20170616
